FAERS Safety Report 15360990 (Version 1)
Quarter: 2018Q3

REPORT INFORMATION
  Report Type: Spontaneous
  Country: US (occurrence: US)
  Receive Date: 20180907
  Receipt Date: 20180907
  Transmission Date: 20181010
  Serious: No
  Sender: FDA-Public Use
  Company Number: US-SA-2018SA250983

PATIENT
  Age: 68 Year
  Sex: Female

DRUGS (26)
  1. HYDROCHLOROTHIAZIDE. [Concomitant]
     Active Substance: HYDROCHLOROTHIAZIDE
  2. VITAMIN D2 [Concomitant]
     Active Substance: ERGOCALCIFEROL
  3. NORVASC [Concomitant]
     Active Substance: AMLODIPINE BESYLATE
  4. ESTRADIOL. [Concomitant]
     Active Substance: ESTRADIOL
  5. CRANBERRY PLUS [Concomitant]
  6. TOPROL XL [Concomitant]
     Active Substance: METOPROLOL SUCCINATE
  7. AUBAGIO [Suspect]
     Active Substance: TERIFLUNOMIDE
     Indication: MULTIPLE SCLEROSIS
     Dosage: 14 MG, QD
     Route: 048
     Dates: start: 20180801
  8. GRALISE [Concomitant]
     Active Substance: GABAPENTIN
  9. CYMBALTA [Concomitant]
     Active Substance: DULOXETINE HYDROCHLORIDE
  10. BIOTIN [Concomitant]
     Active Substance: BIOTIN
  11. MYRBETRIQ [Concomitant]
     Active Substance: MIRABEGRON
  12. FLOMAX RELIEF [Concomitant]
     Active Substance: TAMSULOSIN HYDROCHLORIDE
  13. ADIPEX?P [Concomitant]
     Active Substance: PHENTERMINE HYDROCHLORIDE
  14. NUVIGIL [Concomitant]
     Active Substance: ARMODAFINIL
  15. NEXIUM 24HR [Concomitant]
     Active Substance: ESOMEPRAZOLE MAGNESIUM
  16. ZINC. [Concomitant]
     Active Substance: ZINC
  17. VALTREX [Concomitant]
     Active Substance: VALACYCLOVIR HYDROCHLORIDE
  18. MOBIC [Concomitant]
     Active Substance: MELOXICAM
  19. BACLOFEN. [Concomitant]
     Active Substance: BACLOFEN
  20. TRAZODONE [Concomitant]
     Active Substance: TRAZODONE HYDROCHLORIDE
  21. LORATADINE. [Concomitant]
     Active Substance: LORATADINE
  22. SYNTHROID [Concomitant]
     Active Substance: LEVOTHYROXINE SODIUM
  23. PROZAC [Concomitant]
     Active Substance: FLUOXETINE HYDROCHLORIDE
  24. MAGNESIUM [Concomitant]
     Active Substance: MAGNESIUM
  25. POTASSIUM CHLORIDE. [Concomitant]
     Active Substance: POTASSIUM CHLORIDE
  26. LASIX M [Concomitant]
     Active Substance: FUROSEMIDE

REACTIONS (1)
  - Feeling abnormal [Unknown]
